FAERS Safety Report 24982440 (Version 6)
Quarter: 2025Q3

REPORT INFORMATION
  Report Type: Spontaneous
  Country: JP (occurrence: JP)
  Receive Date: 20250218
  Receipt Date: 20250912
  Transmission Date: 20251020
  Serious: Yes (Other)
  Sender: BRISTOL-MYERS SQUIBB COMPANY
  Company Number: JP-BRISTOL-MYERS SQUIBB COMPANY-2025-022742

PATIENT
  Age: 7 Decade
  Sex: Male

DRUGS (6)
  1. YERVOY [Suspect]
     Active Substance: IPILIMUMAB
     Indication: Pleural mesothelioma malignant
     Dates: start: 20250108
  2. YERVOY [Suspect]
     Active Substance: IPILIMUMAB
     Dates: start: 20250515
  3. OPDIVO [Suspect]
     Active Substance: NIVOLUMAB
     Indication: Pleural mesothelioma malignant
     Dates: start: 20250108
  4. OPDIVO [Suspect]
     Active Substance: NIVOLUMAB
     Dates: start: 20250515
  5. CALONAL [Suspect]
     Active Substance: ACETAMINOPHEN
     Indication: Product used for unknown indication
  6. CELECOXIB [Suspect]
     Active Substance: CELECOXIB
     Indication: Product used for unknown indication

REACTIONS (6)
  - Cytokine release syndrome [Recovering/Resolving]
  - Neutrophil count decreased [Unknown]
  - Pancytopenia [Unknown]
  - Rash [Unknown]
  - Aspartate aminotransferase increased [Recovered/Resolved]
  - Diarrhoea [Unknown]

NARRATIVE: CASE EVENT DATE: 20250612
